FAERS Safety Report 17930359 (Version 2)
Quarter: 2020Q3

REPORT INFORMATION
  Report Type: Spontaneous
  Country: US (occurrence: US)
  Receive Date: 20200623
  Receipt Date: 20200814
  Transmission Date: 20201103
  Serious: Yes (Other)
  Sender: FDA-Public Use
  Company Number: US-EDGEWELL PERSONAL CARE, LLC-2086551

PATIENT
  Age: 6 Year
  Sex: Male
  Weight: 25.8 kg

DRUGS (3)
  1. BANANA BOAT (AVOBENZONE\HOMOSALATE\OCTISALATE\OCTOCRYLENE) [Suspect]
     Active Substance: AVOBENZONE\HOMOSALATE\OCTISALATE\OCTOCRYLENE
     Indication: PROPHYLAXIS AGAINST SOLAR RADIATION
     Route: 061
     Dates: start: 20200606, end: 20200606
  2. VITAMINS ? MINERALS (MULTI COMPLETE) [Concomitant]
     Route: 048
  3. MELATONIN [Concomitant]
     Active Substance: MELATONIN
     Route: 048

REACTIONS (3)
  - Sunburn [Recovering/Resolving]
  - Burns second degree [Recovering/Resolving]
  - Burns first degree [Recovering/Resolving]

NARRATIVE: CASE EVENT DATE: 20200606
